FAERS Safety Report 9633877 (Version 1)
Quarter: 2013Q4

REPORT INFORMATION
  Report Type: Spontaneous
  Country: US (occurrence: None)
  Receive Date: 20131017
  Receipt Date: 20131017
  Transmission Date: 20140711
  Serious: Yes (Other)
  Sender: FDA-Public Use
  Company Number: COR_00023_2013

PATIENT
  Age: 66 Year
  Sex: Male

DRUGS (4)
  1. ETOPOSIDE [Suspect]
     Indication: NODAL MARGINAL ZONE B-CELL LYMPHOMA STAGE IV
     Route: 048
  2. PREDNISONE [Suspect]
     Indication: NODAL MARGINAL ZONE B-CELL LYMPHOMA STAGE IV
     Route: 048
  3. PROCARBAZINE [Suspect]
     Indication: NODAL MARGINAL ZONE B-CELL LYMPHOMA STAGE IV
     Route: 048
  4. CYCLOPHOSPHAMIDE [Suspect]
     Indication: NODAL MARGINAL ZONE B-CELL LYMPHOMA STAGE IV
     Route: 048

REACTIONS (6)
  - Musculoskeletal chest pain [None]
  - Headache [None]
  - Pyrexia [None]
  - White blood cell count decreased [None]
  - Cryptococcosis [None]
  - Osteomyelitis [None]
